FAERS Safety Report 19297525 (Version 1)
Quarter: 2021Q2

REPORT INFORMATION
  Report Type: Spontaneous
  Country: US (occurrence: US)
  Receive Date: 20210524
  Receipt Date: 20210524
  Transmission Date: 20210717
  Serious: No
  Sender: FDA-Public Use
  Company Number: US-MYLANLABS-2021M1026796

PATIENT
  Sex: Female
  Weight: 69 kg

DRUGS (2)
  1. PROCTOFOAM HC [Suspect]
     Active Substance: HYDROCORTISONE ACETATE\PRAMOXINE HYDROCHLORIDE
     Indication: CONSTIPATION
  2. PROCTOFOAM HC [Suspect]
     Active Substance: HYDROCORTISONE ACETATE\PRAMOXINE HYDROCHLORIDE
     Indication: ANORECTAL DISCOMFORT
     Dosage: 3 TIMES A DAY
     Route: 054
     Dates: start: 20210429

REACTIONS (2)
  - Off label use [Not Recovered/Not Resolved]
  - Product container issue [Not Recovered/Not Resolved]
